FAERS Safety Report 6542042-6 (Version None)
Quarter: 2010Q1

REPORT INFORMATION
  Report Type: 
  Country: None (occurrence: None)
  Receive Date: 20100115
  Receipt Date: 20100111
  Transmission Date: 20100710
  Serious: Yes (Hospitalization)
  Sender: FDA-Public Use
  Company Number: DL2010-0005

PATIENT
  Age: 25 Year
  Sex: Female

DRUGS (3)
  1. MIFEPRISTONE TABLETS, 200 MG (DANCO LABS) [Suspect]
     Indication: ABORTION INDUCED
     Dosage: 200 MG, ORAL
     Route: 048
     Dates: start: 20090731
  2. MISOPROSTOL [Suspect]
     Dosage: 800 MCG BUCAL
     Route: 002
     Dates: start: 20090801
  3. DOXYCYCLINE [Concomitant]

REACTIONS (6)
  - ABDOMINAL PAIN [None]
  - DRUG EXPOSURE DURING PREGNANCY [None]
  - ENDOMETRITIS [None]
  - MUSCULOSKELETAL DISCOMFORT [None]
  - NAUSEA [None]
  - RETAINED PRODUCTS OF CONCEPTION [None]
